FAERS Safety Report 26055610 (Version 1)
Quarter: 2025Q4

REPORT INFORMATION
  Report Type: Spontaneous
  Country: US (occurrence: US)
  Receive Date: 20251117
  Receipt Date: 20251117
  Transmission Date: 20260118
  Serious: Yes (Other)
  Sender: ABBVIE
  Company Number: US-ABBVIE-6549058

PATIENT
  Age: 99 Year
  Sex: Female
  Weight: 58 kg

DRUGS (2)
  1. OZURDEX [Suspect]
     Active Substance: DEXAMETHASONE
     Indication: Retinal vein occlusion
     Dosage: TIME INTERVAL: AS NECESSARY
     Route: 050
     Dates: start: 20250501, end: 20250501
  2. OZURDEX [Suspect]
     Active Substance: DEXAMETHASONE
     Indication: Macular oedema

REACTIONS (5)
  - Endophthalmitis [Unknown]
  - Inflammation [Unknown]
  - Visual impairment [Unknown]
  - Eye pain [Unknown]
  - Ocular discomfort [Unknown]

NARRATIVE: CASE EVENT DATE: 20251110
